FAERS Safety Report 15700173 (Version 1)
Quarter: 2018Q4

REPORT INFORMATION
  Report Type: Spontaneous
  Country: US (occurrence: US)
  Receive Date: 20181207
  Receipt Date: 20181207
  Transmission Date: 20190205
  Serious: No
  Sender: FDA-Public Use
  Company Number: US-SUNOVION-2018SUN004702

PATIENT
  Sex: Female
  Weight: 102.04 kg

DRUGS (1)
  1. BROVANA [Suspect]
     Active Substance: ARFORMOTEROL TARTRATE
     Indication: CHRONIC OBSTRUCTIVE PULMONARY DISEASE
     Dosage: 15 ?G/ 2ML
     Route: 055

REACTIONS (3)
  - Feeling hot [Not Recovered/Not Resolved]
  - Rash [Not Recovered/Not Resolved]
  - Expired product administered [Unknown]
